FAERS Safety Report 9567066 (Version 1)
Quarter: 2013Q3

REPORT INFORMATION
  Report Type: Spontaneous
  Country: US (occurrence: US)
  Receive Date: 20130930
  Receipt Date: 20130930
  Transmission Date: 20140515
  Serious: No
  Sender: FDA-Public Use
  Company Number: US-AMGEN-USASP2012061195

PATIENT
  Age: 64 Year
  Sex: Female
  Weight: 70.3 kg

DRUGS (13)
  1. ENBREL [Suspect]
     Indication: PRODUCT USED FOR UNKNOWN INDICATION
     Dosage: 50 MG, QWK
     Route: 058
  2. GLIMEPIRID [Concomitant]
     Dosage: 1 MG, UNK
  3. EFFEXOR [Concomitant]
     Dosage: 25 MG, UNK
  4. SIMVASTATIN [Concomitant]
     Dosage: 5 MG, UNK
  5. ARMOUR THYROID [Concomitant]
     Dosage: 15 MG, UNK
  6. POTASSIUM [Concomitant]
     Dosage: 75 MG, UNK
  7. CLONIDINE [Concomitant]
     Dosage: 0.1 MG, UNK
  8. ASPIRIN [Concomitant]
     Dosage: 81 MG, UNK
  9. MULTIVITAMIN                       /00097801/ [Concomitant]
     Dosage: UNK
  10. METFORMIN [Concomitant]
     Dosage: 500 MG, UNK
  11. LEVOFLOXACIN [Concomitant]
     Dosage: 250 MG, UNK
  12. LORATADINE [Concomitant]
     Dosage: 10 MG, UNK
  13. HYDROCHLOROTHIAZIDE WITH TRIAMTERENE [Concomitant]
     Dosage: 25-50MG

REACTIONS (1)
  - Upper respiratory tract infection [Unknown]
